FAERS Safety Report 6484807-5 (Version None)
Quarter: 2009Q4

REPORT INFORMATION
  Report Type: 
  Country: None (occurrence: None)
  Receive Date: 20091209
  Receipt Date: 20090602
  Transmission Date: 20100525
  Serious: No
  Sender: FDA-Public Use
  Company Number: A0788011A

PATIENT
  Age: 75 Year
  Sex: Male

DRUGS (2)
  1. AVANDAMET [Suspect]
     Route: 048
     Dates: end: 20090601
  2. NO CONCURRENT MEDICATION [Concomitant]

REACTIONS (1)
  - DYSPNOEA [None]
